FAERS Safety Report 7671197-5 (Version None)
Quarter: 2011Q3

REPORT INFORMATION
  Report Type: 
  Country: None (occurrence: None)
  Receive Date: 20110803
  Receipt Date: 20110721
  Transmission Date: 20111222
  Serious: Yes (Death)
  Sender: FDA-Public Use
  Company Number: FK201101458

PATIENT
  Age: 57 Year
  Sex: Female

DRUGS (8)
  1. ONDANSETRON [Concomitant]
  2. AVASTIN [Suspect]
  3. CYCLIZINE (CYCLIZINE) (CYCLIZINE) [Concomitant]
  4. OXALIPLATIN [Suspect]
     Indication: RECTAL CANCER METASTATIC
     Dosage: 220 MG, INTRAVENOUS (NOT OTHERWISE SPECIFIED)
     Route: 042
     Dates: start: 20110316, end: 20110427
  5. AVASTIN [Suspect]
     Indication: RECTAL CANCER METASTATIC
     Dosage: 475 MG, INTRAVENOUS (NOT OTHERWISE SPECIFIED)
     Route: 042
     Dates: start: 20110406, end: 20110427
  6. DEXAMETASONE (DEXAMETHASONE) (DEXAMETHASONE) [Concomitant]
  7. OMEPRAZOLE [Concomitant]
  8. PROCHLORPERAZINE (PROCHLORPERAZINE) (PROCHLORPERAZINE) [Concomitant]

REACTIONS (3)
  - ORAL CANDIDIASIS [None]
  - CEREBROVASCULAR ACCIDENT [None]
  - CEREBRAL INFARCTION [None]
